FAERS Safety Report 6839752-X (Version None)
Quarter: 2010Q3

REPORT INFORMATION
  Report Type: 
  Country: None (occurrence: None)
  Receive Date: 20100714
  Receipt Date: 20100707
  Transmission Date: 20110219
  Serious: Yes (Hospitalization)
  Sender: FDA-Public Use
  Company Number: FR-NOVOPROD-311251

PATIENT
  Age: 10 Year
  Sex: Male

DRUGS (4)
  1. NOVOSEVEN [Suspect]
     Indication: HAEMOPHILIA
     Dosage: 3.6 MG/48H/IV
     Route: 042
     Dates: start: 20071214
  2. NOVOSEVEN [Suspect]
     Dosage: 3.6 MG/48H/IV
  3. FLUCONAZOLE [Concomitant]
  4. CASPOFUNGIN [Concomitant]

REACTIONS (1)
  - CANDIDA SEPSIS [None]
